FAERS Safety Report 11285545 (Version 6)
Quarter: 2016Q2

REPORT INFORMATION
  Report Type: Spontaneous
  Country: US (occurrence: US)
  Receive Date: 20150720
  Receipt Date: 20160412
  Transmission Date: 20160815
  Serious: Yes (Other)
  Sender: FDA-Public Use
  Company Number: US-VERTEX PHARMACEUTICALS-2015-002948

PATIENT
  Age: 5 Year
  Sex: Male
  Weight: 20 kg

DRUGS (15)
  1. KALYDECO [Suspect]
     Active Substance: IVACAFTOR
     Dosage: UNK
     Route: 048
     Dates: start: 20160206
  2. NEXIUM [Concomitant]
     Active Substance: ESOMEPRAZOLE MAGNESIUM
  3. MEPHYTON [Concomitant]
     Active Substance: PHYTONADIONE
  4. ACETAMINOPHEN. [Concomitant]
     Active Substance: ACETAMINOPHEN
     Dosage: UNK, PRN
  5. VITAMIN D3 [Concomitant]
     Active Substance: CHOLECALCIFEROL
  6. MIRALAX [Concomitant]
     Active Substance: POLYETHYLENE GLYCOL 3350
  7. KALYDECO [Suspect]
     Active Substance: IVACAFTOR
     Indication: CYSTIC FIBROSIS
     Dosage: 75 MG, BID
     Route: 048
     Dates: start: 20150527, end: 20150716
  8. LORATADINE. [Concomitant]
     Active Substance: LORATADINE
  9. MULTIVITAMIN [Concomitant]
     Active Substance: VITAMINS
  10. HYPERSAL [Concomitant]
  11. ALBUTEROL. [Concomitant]
     Active Substance: ALBUTEROL
  12. NASONEX [Concomitant]
     Active Substance: MOMETASONE FUROATE
  13. PULMOZYME [Concomitant]
     Active Substance: DORNASE ALFA
  14. PERIACTIN [Concomitant]
     Active Substance: CYPROHEPTADINE HYDROCHLORIDE
  15. CREON [Concomitant]
     Active Substance: PANCRELIPASE AMYLASE\PANCRELIPASE LIPASE\PANCRELIPASE PROTEASE

REACTIONS (4)
  - Hepatomegaly [Unknown]
  - Gamma-glutamyltransferase increased [Recovering/Resolving]
  - Aspartate aminotransferase increased [Recovering/Resolving]
  - Alanine aminotransferase increased [Recovering/Resolving]

NARRATIVE: CASE EVENT DATE: 20150715
